FAERS Safety Report 5627952-6 (Version None)
Quarter: 2008Q1

REPORT INFORMATION
  Report Type: 
  Country: None (occurrence: None)
  Receive Date: 20080215
  Receipt Date: 20080204
  Transmission Date: 20080703
  Serious: Yes (Hospitalization)
  Sender: FDA-Public Use
  Company Number: DE-WYE-H02598508

PATIENT
  Age: 51 Year
  Sex: Male

DRUGS (1)
  1. CORDAREX [Suspect]
     Indication: CARDIOMYOPATHY
     Dosage: UNSPECIFIED
     Route: 065
     Dates: end: 20080101

REACTIONS (3)
  - ALVEOLITIS [None]
  - PNEUMONIA PRIMARY ATYPICAL [None]
  - TACHYCARDIA [None]
